FAERS Safety Report 14664913 (Version 1)
Quarter: 2018Q1

REPORT INFORMATION
  Report Type: Spontaneous
  Country: US (occurrence: US)
  Receive Date: 20180319
  Receipt Date: 20180319
  Transmission Date: 20180509
  Serious: Yes (Other)
  Sender: FDA-Public Use
  Company Number: None

PATIENT
  Age: 8 Year
  Sex: Male
  Weight: 32.4 kg

DRUGS (1)
  1. ARIPIPRAZOLE. [Suspect]
     Active Substance: ARIPIPRAZOLE
     Indication: DISRUPTIVE MOOD DYSREGULATION DISORDER
     Route: 048
     Dates: start: 20180104, end: 20180301

REACTIONS (8)
  - Aggression [None]
  - Middle insomnia [None]
  - Drug ineffective [None]
  - Initial insomnia [None]
  - Abnormal behaviour [None]
  - Condition aggravated [None]
  - Screaming [None]
  - Product substitution issue [None]

NARRATIVE: CASE EVENT DATE: 20180104
